FAERS Safety Report 18034366 (Version 1)
Quarter: 2020Q3

REPORT INFORMATION
  Report Type: Report from Study
  Country: US (occurrence: US)
  Receive Date: 20200716
  Receipt Date: 20200716
  Transmission Date: 20201103
  Serious: Yes (Hospitalization)
  Sender: FDA-Public Use
  Company Number: US-TEVA-2020-US-1802319

PATIENT
  Age: 71 Year
  Sex: Female

DRUGS (16)
  1. DOXORUBICIN [Suspect]
     Active Substance: DOXORUBICIN
     Indication: TRIPLE NEGATIVE BREAST CANCER
     Dosage: DAILY DOSE : (60)
     Route: 042
     Dates: start: 20150504
  2. CALCIUM?VITAMIN C?VITAMIN D2( [Concomitant]
     Indication: MINERAL SUPPLEMENTATION
     Dosage: (1 IN 1 D)
     Route: 048
  3. FOLIC ACID. [Concomitant]
     Active Substance: FOLIC ACID
     Indication: MINERAL SUPPLEMENTATION
     Dosage: (1 IN 1 D)
     Route: 048
     Dates: start: 20150420
  4. ZOFRAN [Concomitant]
     Active Substance: ONDANSETRON HYDROCHLORIDE
     Indication: PROPHYLAXIS OF NAUSEA AND VOMITING
     Dosage: (8 MG, AS REQUIRED)
     Route: 048
     Dates: start: 20150209
  5. CARBOPLATIN. [Suspect]
     Active Substance: CARBOPLATIN
     Indication: TRIPLE NEGATIVE BREAST CANCER
     Route: 042
     Dates: start: 20150209
  6. ABT?888 [Suspect]
     Active Substance: VELIPARIB
     Indication: TRIPLE NEGATIVE BREAST CANCER
     Dosage: (2 IN 1 D)
     Route: 048
     Dates: start: 20150209
  7. DEXAMETHASONE. [Concomitant]
     Active Substance: DEXAMETHASONE
     Indication: PROPHYLAXIS OF NAUSEA AND VOMITING
     Dosage: (8 MG , AS REQUIRED)
     Route: 048
     Dates: start: 20150209
  8. PRILOSEC [Concomitant]
     Active Substance: OMEPRAZOLE MAGNESIUM
     Indication: GASTROOESOPHAGEAL REFLUX DISEASE
     Dosage: 20 MILLIGRAM DAILY; 20 MG (20 MG,1 IN 1 D)
     Route: 048
     Dates: start: 20150309
  9. TYLENOL [Concomitant]
     Active Substance: ACETAMINOPHEN
     Indication: CHEST PAIN
     Dosage: (30 MG, AS REQUIRED)
     Route: 048
     Dates: start: 20150128
  10. ROBITUSSIN (GUAIFENESIN) [Concomitant]
     Active Substance: GUAIFENESIN
     Indication: COUGH
     Dosage: (200 MG, AS REQUIRED)
     Route: 048
     Dates: start: 20150413
  11. COD LIVER OIL [Concomitant]
     Active Substance: COD LIVER OIL
     Indication: MINERAL SUPPLEMENTATION
     Dosage: (1 IN 1 D)
     Route: 048
  12. PACLITAXEL. [Suspect]
     Active Substance: PACLITAXEL
     Indication: TRIPLE NEGATIVE BREAST CANCER
     Dosage: DAILY DOSE : (80)
     Route: 042
     Dates: start: 20150209
  13. CYCLOPHOSPHAMIDE. [Suspect]
     Active Substance: CYCLOPHOSPHAMIDE
     Indication: TRIPLE NEGATIVE BREAST CANCER
     Dosage: DAILY DOSE : (600)
     Route: 042
     Dates: start: 20150504
  14. VITAMIN E [Concomitant]
     Active Substance: .ALPHA.-TOCOPHEROL
     Indication: VITAMIN SUPPLEMENTATION
     Dosage: 400 IU (INTERNATIONAL UNIT) DAILY;
     Route: 048
  15. LEVAQUIN [Concomitant]
     Active Substance: LEVOFLOXACIN
     Indication: FEBRILE NEUTROPENIA
     Dosage: 750 MILLIGRAM DAILY; (750 MG,1 IN 1 D)
     Route: 048
     Dates: start: 20150511
  16. COMPAZINE [Concomitant]
     Active Substance: PROCHLORPERAZINE MALEATE
     Indication: PROPHYLAXIS OF NAUSEA AND VOMITING
     Dosage: (10 MG, AS REQUIRED)
     Route: 048
     Dates: start: 20150209

REACTIONS (1)
  - Febrile neutropenia [Recovered/Resolved]

NARRATIVE: CASE EVENT DATE: 20150511
